FAERS Safety Report 5441593-5 (Version None)
Quarter: 2007Q3

REPORT INFORMATION
  Report Type: 
  Country: None (occurrence: None)
  Receive Date: 20070830
  Receipt Date: 20070830
  Transmission Date: 20080115
  Serious: Yes (Life-Threatening)
  Sender: FDA-Public Use
  Company Number: None

PATIENT
  Age: 72 Year
  Sex: Female
  Weight: 80.2867 kg

DRUGS (15)
  1. ADRIAMYCIN PFS [Suspect]
     Indication: BREAST CANCER
     Dosage: Q 3 WKS X 6 CYCLES
     Dates: start: 20020101
  2. CYTOXAN [Suspect]
     Indication: BREAST CANCER
     Dosage: Q3WKS X 6 CYCLES
     Dates: start: 20020101
  3. TAMOXIFEN [Suspect]
     Indication: BREAST CANCER
     Dates: start: 20020101
  4. FEMARA [Suspect]
     Indication: BREAST CANCER
     Dates: start: 20040101
  5. FASLODEX [Suspect]
     Indication: BREAST CANCER
     Dates: start: 20030101
  6. XELODA [Suspect]
     Indication: BREAST CANCER
     Dates: start: 20051001
  7. TAXOTERE [Suspect]
     Indication: BREAST CANCER
     Dates: start: 20060301
  8. TAXOTERE [Suspect]
     Indication: BREAST CANCER
     Dates: start: 20061201
  9. ALIMTA [Suspect]
     Indication: BREAST CANCER
  10. COUMADIN [Concomitant]
  11. LISINOPRIL [Concomitant]
  12. LUNESTA [Concomitant]
  13. PROCRIT [Concomitant]
  14. NEULASTA [Concomitant]
  15. TOPROL-XL [Concomitant]

REACTIONS (2)
  - ACUTE MONOCYTIC LEUKAEMIA [None]
  - PLATELET COUNT DECREASED [None]
